FAERS Safety Report 20589541 (Version 1)
Quarter: 2022Q1

REPORT INFORMATION
  Report Type: Spontaneous
  Country: US (occurrence: None)
  Receive Date: 20220311
  Receipt Date: 20220311
  Transmission Date: 20220423
  Serious: Yes (Hospitalization)
  Sender: FDA-Public Use
  Company Number: None

PATIENT
  Age: 82 Year
  Sex: Male
  Weight: 76.59 kg

DRUGS (8)
  1. TAFINLAR [Suspect]
     Active Substance: DABRAFENIB MESYLATE
     Indication: Malignant melanoma
     Dosage: FREQUENCY : TWICE A DAY;?
     Route: 048
     Dates: start: 20211210
  2. ATENOLOL [Concomitant]
     Active Substance: ATENOLOL
  3. BUPROPION [Concomitant]
     Active Substance: BUPROPION
  4. PEPTO BISMOL 262MG [Concomitant]
  5. SIMVASTATIN [Concomitant]
     Active Substance: SIMVASTATIN
  6. DOCUSATE [Concomitant]
     Active Substance: DOCUSATE
  7. PROCHLORPERAZINE 10MG [Concomitant]
  8. ADVIL COLD/SINUS TABLET 30-200MG [Concomitant]

REACTIONS (1)
  - Ulcer haemorrhage [None]

NARRATIVE: CASE EVENT DATE: 20220307
